FAERS Safety Report 4524249-2 (Version None)
Quarter: 2004Q4

REPORT INFORMATION
  Report Type: 
  Country: None (occurrence: None)
  Receive Date: 20041119
  Receipt Date: 20041012
  Transmission Date: 20050328
  Serious: No
  Sender: FDA-Public Use
  Company Number: PHEH2004US10460

PATIENT
  Age: 81 Year
  Sex: Female

DRUGS (3)
  1. ZELNORM [Suspect]
     Indication: IRRITABLE BOWEL SYNDROME
     Dosage: 6 MG, BID, ORAL
     Route: 048
     Dates: start: 20040801
  2. ACTONEL [Concomitant]
  3. CENTRUM SILVER (RETINOL, VITAMIN B NOS, ZINC) [Concomitant]

REACTIONS (1)
  - FAECES DISCOLOURED [None]
